FAERS Safety Report 4879354-8 (Version None)
Quarter: 2006Q1

REPORT INFORMATION
  Report Type: 
  Country: None (occurrence: None)
  Receive Date: 20060112
  Receipt Date: 20050926
  Transmission Date: 20060701
  Serious: Yes (Hospitalization, Disabling)
  Sender: FDA-Public Use
  Company Number: US-MERCK-0509USA03787

PATIENT
  Age: 47 Year
  Sex: Female
  Weight: 141 kg

DRUGS (1)
  1. VIOXX [Suspect]
     Indication: NERVE COMPRESSION
     Route: 048
     Dates: start: 20000801

REACTIONS (7)
  - ANXIETY [None]
  - ARTHROPATHY [None]
  - CARDIOVASCULAR DISORDER [None]
  - DYSPNOEA [None]
  - MYOCARDIAL INFARCTION [None]
  - PAIN [None]
  - PRESCRIBED OVERDOSE [None]
